FAERS Safety Report 8222803-8 (Version None)
Quarter: 2012Q1

REPORT INFORMATION
  Report Type: 
  Country: None (occurrence: None)
  Receive Date: 20120320
  Receipt Date: 20120313
  Transmission Date: 20120608
  Serious: Yes (Other)
  Sender: FDA-Public Use
  Company Number: CA-JNJFOC-20120306009

PATIENT
  Sex: Male

DRUGS (2)
  1. MELOXICAM [Concomitant]
  2. SIMPONI [Suspect]
     Indication: ANKYLOSING SPONDYLITIS
     Route: 058

REACTIONS (3)
  - WHITE BLOOD CELL COUNT INCREASED [None]
  - HEART RATE INCREASED [None]
  - PANCREATITIS [None]
